FAERS Safety Report 8034171-5 (Version None)
Quarter: 2012Q1

REPORT INFORMATION
  Report Type: 
  Country: None (occurrence: None)
  Receive Date: 20120110
  Receipt Date: 20120105
  Transmission Date: 20120608
  Serious: No
  Sender: FDA-Public Use
  Company Number: US-B.I. PHARMACEUTICALS,INC./RIDGEFIELD-2012-BP-00324BP

PATIENT
  Sex: Male

DRUGS (8)
  1. GLIMEPIRIDE [Suspect]
     Indication: TYPE 2 DIABETES MELLITUS
     Dosage: 4 MG
  2. TRADJENTA [Suspect]
     Indication: TYPE 2 DIABETES MELLITUS
     Dosage: 5 MG
     Route: 048
     Dates: start: 20111111
  3. GLIMEPIRIDE [Suspect]
     Dosage: 2 MG
  4. METFORMIN HCL [Concomitant]
     Dosage: 100 MG
  5. STARTS WITH HYDRO [Concomitant]
     Indication: DIURETIC THERAPY
  6. START WITH A B AND IS GENERIC [Concomitant]
     Indication: BLOOD PRESSURE ABNORMAL
  7. PROPRANOLOL [Concomitant]
     Indication: TREMOR
  8. METFORMIN HCL [Concomitant]
     Indication: TYPE 2 DIABETES MELLITUS
     Dosage: 1000 MG

REACTIONS (2)
  - HYPOGLYCAEMIA [None]
  - HYPERGLYCAEMIA [None]
